FAERS Safety Report 7064578-4 (Version None)
Quarter: 2010Q4

REPORT INFORMATION
  Report Type: 
  Country: None (occurrence: None)
  Receive Date: 20101027
  Receipt Date: 20101021
  Transmission Date: 20110411
  Serious: Yes (Life-Threatening, Hospitalization)
  Sender: FDA-Public Use
  Company Number: JP-SANOFI-AVENTIS-2010SA064340

PATIENT
  Age: 49 Year

DRUGS (3)
  1. AMARYL [Suspect]
     Route: 048
     Dates: start: 20101020, end: 20101020
  2. METFORMIN HCL [Concomitant]
     Route: 048
     Dates: start: 20101020, end: 20101020
  3. NOVORAPID [Concomitant]
     Dosage: DOSE:600 UNIT(S)
     Route: 058
     Dates: start: 20101020, end: 20101020

REACTIONS (2)
  - CARDIO-RESPIRATORY ARREST [None]
  - OVERDOSE [None]
